FAERS Safety Report 10255461 (Version 1)
Quarter: 2014Q2

REPORT INFORMATION
  Report Type: Spontaneous
  Country: US (occurrence: US)
  Receive Date: 20140624
  Receipt Date: 20140624
  Transmission Date: 20141212
  Serious: No
  Sender: FDA-Public Use
  Company Number: US-ASTRAZENECA-2014SE41180

PATIENT
  Age: 76 Year
  Sex: Female
  Weight: 65.8 kg

DRUGS (2)
  1. PULMICORT FLEXHALER [Suspect]
     Indication: DYSPNOEA
     Route: 055
     Dates: start: 201406
  2. BLOOD PRESSURE MEDICINE [Concomitant]
     Indication: BLOOD PRESSURE AMBULATORY ABNORMAL
     Dosage: UNK UNK
     Route: 048

REACTIONS (3)
  - Dyspnoea [Unknown]
  - Confusional state [Unknown]
  - Circumstance or information capable of leading to medication error [Unknown]
